FAERS Safety Report 4881951-0 (Version None)
Quarter: 2006Q1

REPORT INFORMATION
  Report Type: 
  Country: None (occurrence: None)
  Receive Date: 20060117
  Receipt Date: 20060105
  Transmission Date: 20060701
  Serious: Yes (Other)
  Sender: FDA-Public Use
  Company Number: 42182

PATIENT
  Sex: Female
  Weight: 3 kg

DRUGS (4)
  1. TRIZIVIR [Suspect]
     Indication: HIV INFECTION
     Dosage: 1500MG PER DAY
     Dates: end: 20041027
  2. COMBIVIR [Suspect]
     Indication: HIV INFECTION
     Dosage: 900MG PER DAY
     Dates: start: 20041027
  3. VIREAD [Concomitant]
     Indication: HIV INFECTION
     Dosage: 300MG PER DAY
     Dates: start: 20041027
  4. KALETRA [Concomitant]
     Indication: HIV INFECTION
     Dosage: 1000MG PER DAY
     Dates: start: 20041027

REACTIONS (2)
  - DRUG EXPOSURE DURING PREGNANCY [None]
  - GALACTOSAEMIA [None]
